FAERS Safety Report 23179021 (Version 1)
Quarter: 2023Q4

REPORT INFORMATION
  Report Type: Spontaneous
  Country: FR (occurrence: FR)
  Receive Date: 20231113
  Receipt Date: 20231113
  Transmission Date: 20240110
  Serious: Yes (Hospitalization, Other)
  Sender: FDA-Public Use
  Company Number: FR-ANIPHARMA-2023-FR-000186

PATIENT
  Age: 75 Year
  Sex: Male

DRUGS (10)
  1. CANDESARTAN CILEXETIL AND HYDROCHLOROTHIAZIDE [Suspect]
     Active Substance: CANDESARTAN CILEXETIL\HYDROCHLOROTHIAZIDE
     Indication: Product used for unknown indication
  2. ORENCIA [Suspect]
     Active Substance: ABATACEPT
     Route: 065
  3. ESOMEPRAZOLE [Suspect]
     Active Substance: ESOMEPRAZOLE
     Route: 065
  4. ATORVASTATIN [Suspect]
     Active Substance: ATORVASTATIN
     Route: 065
  5. DULAGLUTIDE [Suspect]
     Active Substance: DULAGLUTIDE
     Route: 065
  6. ASPIRIN [Suspect]
     Active Substance: ASPIRIN
     Route: 065
  7. SILODOSIN [Suspect]
     Active Substance: SILODOSIN
  8. ALPRAZOLAM [Suspect]
     Active Substance: ALPRAZOLAM
     Route: 065
  9. PYGEUM [Suspect]
     Active Substance: PYGEUM
     Route: 065
  10. RILMENIDINE [Suspect]
     Active Substance: RILMENIDINE
     Route: 065

REACTIONS (1)
  - Pancreatitis acute [Recovered/Resolved]

NARRATIVE: CASE EVENT DATE: 20200401
